FAERS Safety Report 6996419-5 (Version None)
Quarter: 2010Q3

REPORT INFORMATION
  Report Type: 
  Country: None (occurrence: None)
  Receive Date: 20100918
  Receipt Date: 20090226
  Transmission Date: 20110219
  Serious: No
  Sender: FDA-Public Use
  Company Number: US-WYE-H08423309

PATIENT
  Sex: Female

DRUGS (1)
  1. PREMPRO [Suspect]
     Route: 048
     Dates: start: 19990101, end: 20090205

REACTIONS (4)
  - ACNE [None]
  - AFFECT LABILITY [None]
  - CRYING [None]
  - DRUG WITHDRAWAL SYNDROME [None]
